FAERS Safety Report 25086994 (Version 1)
Quarter: 2025Q1

REPORT INFORMATION
  Report Type: Spontaneous
  Country: CA (occurrence: CA)
  Receive Date: 20250318
  Receipt Date: 20250318
  Transmission Date: 20250409
  Serious: Yes (Death, Life-Threatening, Hospitalization, Disabling, Other)
  Sender: Haleon PLC
  Company Number: CA-002147023-NVSC2025CA041975

PATIENT
  Age: 43 Year
  Sex: Female
  Weight: 68 kg

DRUGS (16)
  1. DICLOFENAC [Suspect]
     Active Substance: DICLOFENAC
     Indication: Rheumatoid arthritis
     Route: 065
  2. ERELZI [Suspect]
     Active Substance: ETANERCEPT-SZZS
     Indication: Rheumatoid arthritis
     Route: 050
  3. ERELZI [Suspect]
     Active Substance: ETANERCEPT-SZZS
     Route: 050
  4. ERELZI [Suspect]
     Active Substance: ETANERCEPT-SZZS
     Route: 050
  5. DICLOFENAC SODIUM [Suspect]
     Active Substance: DICLOFENAC SODIUM
     Indication: Product used for unknown indication
     Route: 065
  6. RITUXIMAB [Suspect]
     Active Substance: RITUXIMAB
     Indication: Rheumatoid arthritis
     Route: 050
  7. RITUXIMAB [Suspect]
     Active Substance: RITUXIMAB
     Route: 040
  8. LEFLUNOMIDE [Suspect]
     Active Substance: LEFLUNOMIDE
     Indication: Rheumatoid arthritis
     Dosage: 1 DOSAGE FORM, QD
     Route: 050
  9. LEFLUNOMIDE [Suspect]
     Active Substance: LEFLUNOMIDE
     Dosage: 1 DOSAGE FORM, QD
     Route: 050
  10. HYRIMOZ [Suspect]
     Active Substance: ADALIMUMAB-ADAZ
     Indication: Rheumatoid arthritis
     Route: 050
  11. ALENDRONIC ACID [Suspect]
     Active Substance: ALENDRONIC ACID
     Indication: Rheumatoid arthritis
     Route: 050
  12. MYCOPHENOLATE MOFETIL [Suspect]
     Active Substance: MYCOPHENOLATE MOFETIL
     Indication: Product used for unknown indication
     Route: 065
  13. COSENTYX [Suspect]
     Active Substance: SECUKINUMAB
     Indication: Psoriatic arthropathy
     Dosage: 40 MG, QD
     Route: 065
  14. COSENTYX [Suspect]
     Active Substance: SECUKINUMAB
     Route: 065
  15. COSENTYX [Suspect]
     Active Substance: SECUKINUMAB
     Dosage: 40 MG, QD
     Route: 065
  16. COSENTYX [Suspect]
     Active Substance: SECUKINUMAB
     Route: 065

REACTIONS (40)
  - Delirium [Fatal]
  - Irritable bowel syndrome [Fatal]
  - Duodenal ulcer perforation [Fatal]
  - Confusional state [Fatal]
  - Bursitis [Fatal]
  - Dry mouth [Fatal]
  - Colitis ulcerative [Fatal]
  - Decreased appetite [Fatal]
  - Fatigue [Fatal]
  - Adverse drug reaction [Fatal]
  - Anti-cyclic citrullinated peptide antibody positive [Fatal]
  - Dislocation of vertebra [Fatal]
  - Inflammation [Fatal]
  - Discomfort [Fatal]
  - Adverse event [Fatal]
  - Alopecia [Fatal]
  - C-reactive protein abnormal [Fatal]
  - Chest pain [Fatal]
  - Blood cholesterol increased [Fatal]
  - Arthropathy [Fatal]
  - Arthralgia [Fatal]
  - Gait disturbance [Fatal]
  - Depression [Fatal]
  - Frequent bowel movements [Fatal]
  - Intentional product misuse [Fatal]
  - Adjustment disorder with depressed mood [Fatal]
  - Abdominal pain upper [Fatal]
  - Blister [Fatal]
  - Dizziness [Fatal]
  - Asthenia [Fatal]
  - Feeling hot [Fatal]
  - Amnesia [Fatal]
  - Diarrhoea [Fatal]
  - Abdominal discomfort [Fatal]
  - Condition aggravated [Fatal]
  - Drug hypersensitivity [Fatal]
  - Abdominal pain [Fatal]
  - Breast cancer stage III [Fatal]
  - Fibromyalgia [Fatal]
  - Grip strength decreased [Fatal]
